FAERS Safety Report 5499280-3 (Version None)
Quarter: 2007Q4

REPORT INFORMATION
  Report Type: 
  Country: None (occurrence: None)
  Receive Date: 20071024
  Receipt Date: 20071016
  Transmission Date: 20080405
  Serious: Yes (Death)
  Sender: FDA-Public Use
  Company Number: 2007333260

PATIENT
  Age: 4 Month

DRUGS (1)
  1. PEDIACARE DECONGESTANT (PSEUDOEPHEDRINE) [Suspect]

REACTIONS (1)
  - DEATH [None]
